FAERS Safety Report 8948634 (Version 1)
Quarter: 2012Q4

REPORT INFORMATION
  Report Type: 
  Country: FR (occurrence: FR)
  Receive Date: 20121206
  Receipt Date: 20121206
  Transmission Date: 20130627
  Serious: Yes (Hospitalization, Other)
  Sender: FDA-Public Use
  Company Number: PHHY2012FR110134

PATIENT
  Age: 69 Year
  Sex: Male

DRUGS (4)
  1. COTAREG [Suspect]
     Indication: HYPERTENSION
     Route: 048
     Dates: end: 20120929
  2. CYMBALTA [Concomitant]
     Route: 048
  3. DITROPAN [Concomitant]
     Route: 048
  4. PARIET [Concomitant]
     Route: 048

REACTIONS (7)
  - Renal failure acute [Recovered/Resolved]
  - Dehydration [Recovered/Resolved]
  - Respiratory alkalosis [Recovered/Resolved]
  - Dyspnoea [Recovered/Resolved]
  - Tachypnoea [Recovered/Resolved]
  - Abdominal pain [Recovered/Resolved]
  - Apraxia [Recovered/Resolved]
